FAERS Safety Report 9439096 (Version 1)
Quarter: 2013Q3

REPORT INFORMATION
  Report Type: Spontaneous
  Country: ES (occurrence: ES)
  Receive Date: 20130802
  Receipt Date: 20130802
  Transmission Date: 20140515
  Serious: Yes (Other)
  Sender: FDA-Public Use
  Company Number: ES-ABBOTT-13P-144-1125987-00

PATIENT
  Sex: Male

DRUGS (3)
  1. HUMIRA [Suspect]
     Indication: CROHN^S DISEASE
     Route: 058
     Dates: start: 201207, end: 201304
  2. HUMIRA [Suspect]
     Route: 058
     Dates: start: 201304, end: 201307
  3. HUMIRA [Suspect]
     Route: 058
     Dates: start: 201307

REACTIONS (3)
  - Renal failure [Unknown]
  - Drug ineffective [Recovered/Resolved]
  - Thrombocytosis [Unknown]
